FAERS Safety Report 25884572 (Version 1)
Quarter: 2025Q4

REPORT INFORMATION
  Report Type: Spontaneous
  Country: US (occurrence: US)
  Receive Date: 20251006
  Receipt Date: 20251006
  Transmission Date: 20260117
  Serious: No
  Sender: RANBAXY
  Company Number: US-SUN PHARMACEUTICAL INDUSTRIES LTD-2024R1-468375

PATIENT
  Age: 76 Year
  Sex: Male

DRUGS (4)
  1. CEQUA [Suspect]
     Active Substance: CYCLOSPORINE
     Indication: Dry eye
     Dosage: UNK UNK, BID
     Route: 047
     Dates: start: 20240906
  2. LISINOPRIL [Concomitant]
     Active Substance: LISINOPRIL
     Indication: Hypertension
     Dosage: 10 MILLIGRAM
     Route: 065
  3. Optase [Concomitant]
     Indication: Product used for unknown indication
     Dosage: UNK
     Route: 065
  4. LISINOPRIL [Concomitant]
     Active Substance: LISINOPRIL
     Indication: Product used for unknown indication
     Dosage: 10 MILLIGRAM, DAILY
     Route: 065

REACTIONS (7)
  - Ocular hyperaemia [Unknown]
  - Lacrimation increased [Unknown]
  - Insomnia [Unknown]
  - Therapy interrupted [Unknown]
  - Agitation [Unknown]
  - Pruritus [Unknown]
  - Skin discomfort [Unknown]

NARRATIVE: CASE EVENT DATE: 20240909
